FAERS Safety Report 12807596 (Version 1)
Quarter: 2016Q4

REPORT INFORMATION
  Report Type: Spontaneous
  Country: CA (occurrence: US)
  Receive Date: 20161004
  Receipt Date: 20161004
  Transmission Date: 20170207
  Serious: Yes (Other)
  Sender: FDA-Public Use
  Company Number: None

PATIENT
  Age: 38 Year
  Sex: Female
  Weight: 65.77 kg

DRUGS (1)
  1. MIRENA [Suspect]
     Active Substance: LEVONORGESTREL

REACTIONS (5)
  - Haemorrhage [None]
  - Nausea [None]
  - Vaginal odour [None]
  - Complication associated with device [None]
  - Pain [None]

NARRATIVE: CASE EVENT DATE: 20150701
